FAERS Safety Report 7578649-7 (Version None)
Quarter: 2011Q2

REPORT INFORMATION
  Report Type: 
  Country: None (occurrence: None)
  Receive Date: 20110628
  Receipt Date: 20110621
  Transmission Date: 20111010
  Serious: Yes (Other)
  Sender: FDA-Public Use
  Company Number: PHEH2008US07414

PATIENT
  Sex: Female
  Weight: 73.696 kg

DRUGS (29)
  1. CYMBALTA [Concomitant]
     Dosage: 30MG QD
     Dates: start: 20080723
  2. HERCEPTIN [Concomitant]
     Dosage: 4MG/KG Q3WEEKS
  3. LISINOPRIL [Concomitant]
  4. NAMENDA [Concomitant]
     Dosage: 5MG BID
     Dates: start: 20080723
  5. COUMADIN [Concomitant]
     Dosage: UNK
     Dates: start: 20080708
  6. PERIDEX [Concomitant]
     Dosage: X4 PER DAY
  7. AREDIA [Suspect]
     Dosage: UNK, Q 3 MONTHS
     Dates: start: 20070323
  8. FASLODEX [Concomitant]
     Dosage: 250MG IM Q28DAYS
  9. HEPARIN LOCK-FLUSH [Concomitant]
     Dosage: 500 UNITS
  10. PROCRIT                            /00909301/ [Concomitant]
  11. VERPAMIL HCL [Concomitant]
  12. TAXOL [Concomitant]
     Dosage: UNK
     Dates: start: 20040402, end: 20040423
  13. MULTIVITAMIN ^LAPPE^ [Concomitant]
  14. PAXIL [Concomitant]
     Dosage: 20MG QD
     Dates: end: 20080801
  15. DEPLIN [Concomitant]
     Dosage: 1 TAB IN AM
     Dates: start: 20080723
  16. EFFEXOR [Concomitant]
  17. HERCEPTIN [Concomitant]
     Dosage: 2MG/KG Q3WEEKS
  18. MINOCYCLINE HCL [Concomitant]
     Dosage: UNK
     Dates: start: 20071214, end: 20071228
  19. ZOMETA [Suspect]
     Dosage: 4 MG, Q 28 DAYS
     Route: 041
     Dates: start: 20031001, end: 20070323
  20. CEREFOLIN NAC [Concomitant]
     Dosage: 1 TAB IN AM
  21. DIFLUCAN [Concomitant]
  22. NYSTATIN [Concomitant]
  23. FENOFIBRIC ACID [Concomitant]
     Dosage: 2.5MG PO QD
     Route: 048
  24. XYLOCAINE [Concomitant]
     Dosage: PRN
     Dates: start: 20071214
  25. TAXOL + CARBOPLATIN [Concomitant]
     Dosage: UNK
     Dates: start: 20030904, end: 20040402
  26. TAMOXIFEN CITRATE [Concomitant]
  27. PROZAC [Concomitant]
  28. CISPLATIN [Concomitant]
  29. LORAZEPAM [Concomitant]

REACTIONS (66)
  - HYPOACUSIS [None]
  - AURICULAR SWELLING [None]
  - WEIGHT DECREASED [None]
  - FIBROADENOMA OF BREAST [None]
  - ERYTHEMA [None]
  - PARTIAL SEIZURES [None]
  - NAUSEA [None]
  - VOMITING [None]
  - ATAXIA [None]
  - HEADACHE [None]
  - OSTEOPENIA [None]
  - EAR PAIN [None]
  - WOUND INFECTION STAPHYLOCOCCAL [None]
  - FLAT AFFECT [None]
  - MUSCLE DISORDER [None]
  - INFECTION [None]
  - TREMOR [None]
  - ATELECTASIS [None]
  - INJURY [None]
  - MAJOR DEPRESSION [None]
  - HYDROCEPHALUS [None]
  - RENAL FAILURE CHRONIC [None]
  - DIZZINESS [None]
  - OSTEOMYELITIS [None]
  - CELLULITIS [None]
  - GLIOSIS [None]
  - OSTEORADIONECROSIS [None]
  - PROCEDURAL HYPERTENSION [None]
  - LEFT ATRIAL DILATATION [None]
  - MITRAL VALVE INCOMPETENCE [None]
  - BREAST CANCER METASTATIC [None]
  - METASTASES TO LIVER [None]
  - IMPAIRED HEALING [None]
  - FALL [None]
  - OSTEOSCLEROSIS [None]
  - CHOLELITHIASIS [None]
  - AORTIC VALVE INCOMPETENCE [None]
  - TRICUSPID VALVE INCOMPETENCE [None]
  - OSTEONECROSIS OF JAW [None]
  - ANHEDONIA [None]
  - MENINGIOMA [None]
  - MEMORY IMPAIRMENT [None]
  - GAIT DISTURBANCE [None]
  - SECRETION DISCHARGE [None]
  - HERPES SIMPLEX [None]
  - MUSCULAR WEAKNESS [None]
  - ANAEMIA [None]
  - NASAL TURBINATE HYPERTROPHY [None]
  - PNEUMOTHORAX [None]
  - ANXIETY [None]
  - APHASIA [None]
  - VISION BLURRED [None]
  - INTRACRANIAL HYPOTENSION [None]
  - HYPERGLYCAEMIA [None]
  - HEPATIC CIRRHOSIS [None]
  - MASTOID EFFUSION [None]
  - INSOMNIA [None]
  - PAIN [None]
  - OPEN WOUND [None]
  - SUBDURAL HAEMATOMA [None]
  - DYSTHYMIC DISORDER [None]
  - CONFUSIONAL STATE [None]
  - HEPATIC LESION [None]
  - SYNCOPE [None]
  - ENCEPHALOMALACIA [None]
  - AORTIC ARTERIOSCLEROSIS [None]
